FAERS Safety Report 11674687 (Version 2)
Quarter: 2015Q4

REPORT INFORMATION
  Report Type: Spontaneous
  Country: JP (occurrence: JP)
  Receive Date: 20151028
  Receipt Date: 20151119
  Transmission Date: 20160304
  Serious: Yes (Other)
  Sender: FDA-Public Use
  Company Number: JP-PFIZER INC-2015361448

PATIENT
  Age: 57 Year
  Sex: Male

DRUGS (2)
  1. CELECOX [Suspect]
     Active Substance: CELECOXIB
     Indication: ANTIINFLAMMATORY THERAPY
     Dosage: 400 MG, 1X/DAY
     Route: 048
     Dates: start: 20150930, end: 20151001
  2. CELECOX [Suspect]
     Active Substance: CELECOXIB
     Indication: POSTOPERATIVE ANALGESIA

REACTIONS (2)
  - Dermatitis bullous [Recovered/Resolved]
  - Skin exfoliation [Recovered/Resolved]

NARRATIVE: CASE EVENT DATE: 20151001
